FAERS Safety Report 4475318-7 (Version None)
Quarter: 2004Q4

REPORT INFORMATION
  Report Type: 
  Country: None (occurrence: None)
  Receive Date: 20041013
  Receipt Date: 20041013
  Transmission Date: 20050328
  Serious: Yes (Hospitalization, Other)
  Sender: FDA-Public Use
  Company Number: None

PATIENT
  Age: 82 Year
  Sex: Female
  Weight: 59 kg

DRUGS (10)
  1. WARFARIN [Suspect]
     Indication: ANTICOAGULANT THERAPY
     Dosage: 3 MG PO DAILY
     Route: 048
  2. ATENOLOL [Concomitant]
  3. HYDROCHLOROTHIAZIDE [Concomitant]
  4. POTASSIUM [Concomitant]
  5. PEPCID [Concomitant]
  6. ELAVIL [Concomitant]
  7. MEGACE [Concomitant]
  8. VIT B12 [Concomitant]
  9. TYLENOL [Concomitant]
  10. CELEBREX [Concomitant]

REACTIONS (5)
  - COAGULOPATHY [None]
  - DEMENTIA [None]
  - LETHARGY [None]
  - SPEECH DISORDER [None]
  - SUBDURAL HAEMATOMA [None]
